FAERS Safety Report 18991789 (Version 1)
Quarter: 2021Q1

REPORT INFORMATION
  Report Type: Spontaneous
  Country: US (occurrence: US)
  Receive Date: 20210310
  Receipt Date: 20210310
  Transmission Date: 20210420
  Serious: No
  Sender: FDA-Public Use
  Company Number: US-PERRIGO-21US001115

PATIENT
  Age: 2 Year
  Sex: Male
  Weight: 16.33 kg

DRUGS (2)
  1. ALBUTEROL SULFATE. [Suspect]
     Active Substance: ALBUTEROL SULFATE
     Indication: ASTHMA
     Dosage: 180 MCG, PRN, UP TO 4 TIMES DAILY
     Route: 055
     Dates: start: 2020, end: 202011
  2. FLOVENT [Concomitant]
     Active Substance: FLUTICASONE PROPIONATE
     Indication: ASTHMA
     Dosage: UNKNOWN, UNKNOWN
     Route: 065

REACTIONS (3)
  - Underdose [Recovered/Resolved]
  - Device delivery system issue [Unknown]
  - Product administered to patient of inappropriate age [Recovered/Resolved]

NARRATIVE: CASE EVENT DATE: 2020
